FAERS Safety Report 10581221 (Version 1)
Quarter: 2014Q4

REPORT INFORMATION
  Report Type: Spontaneous
  Country: IT (occurrence: None)
  Receive Date: 20141110
  Receipt Date: 20141110
  Transmission Date: 20150529
  Serious: Yes (Hospitalization)
  Sender: FDA-Public Use
  Company Number: 2014AP005369

PATIENT
  Age: 27 Year
  Sex: Female
  Weight: 29 kg

DRUGS (6)
  1. LEVETIRACETAM (LEVETIRACETAM) [Concomitant]
     Active Substance: LEVETIRACETAM
  2. DOMPERIDONE (DOMPERIDONE) [Concomitant]
     Active Substance: DOMPERIDONE
  3. TIRCON2012V1 (DEFERIPRONE\PLACEBO) [Suspect]
     Active Substance: DEFERIPRONE
     Indication: NEURODEGENERATIVE DISORDER
     Dosage: BLINDED, INFORMATION WITHHELD
     Dates: start: 20140305, end: 20140307
  4. TRIHEXYPHENIDYL (TRIHEXPHENIDYL) [Concomitant]
  5. TETRABENAZINE (TETRABENAZINE) [Concomitant]
  6. RANITIDINE [Concomitant]
     Active Substance: RANITIDINE\RANITIDINE HYDROCHLORIDE

REACTIONS (4)
  - Device breakage [None]
  - Dystonia [None]
  - Device connection issue [None]
  - Intrathecal pump insertion [None]

NARRATIVE: CASE EVENT DATE: 20141021
